FAERS Safety Report 15890771 (Version 6)
Quarter: 2020Q3

REPORT INFORMATION
  Report Type: Spontaneous
  Country: US (occurrence: US)
  Receive Date: 20190130
  Receipt Date: 20200730
  Transmission Date: 20201102
  Serious: No
  Sender: FDA-Public Use
  Company Number: US-SA-2019SA022274

PATIENT

DRUGS (1)
  1. DUPIXENT [Suspect]
     Active Substance: DUPILUMAB
     Indication: DERMATITIS ATOPIC
     Dosage: 300 MG, QOW
     Route: 058
     Dates: start: 20181111

REACTIONS (9)
  - Pruritus [Recovering/Resolving]
  - Ocular hyperaemia [Unknown]
  - Feeling hot [Unknown]
  - Penile burning sensation [Not Recovered/Not Resolved]
  - Rash papular [Recovered/Resolved]
  - Swelling face [Recovered/Resolved]
  - Secretion discharge [Recovered/Resolved]
  - Gastrooesophageal reflux disease [Unknown]
  - Dyspepsia [Unknown]

NARRATIVE: CASE EVENT DATE: 201811
